FAERS Safety Report 5921470-3 (Version None)
Quarter: 2008Q4

REPORT INFORMATION
  Report Type: 
  Country: None (occurrence: None)
  Receive Date: 20081016
  Receipt Date: 20081016
  Transmission Date: 20090506
  Serious: Yes (Other)
  Sender: FDA-Public Use
  Company Number: None

PATIENT
  Age: 81 Year
  Sex: Female
  Weight: 115.6672 kg

DRUGS (2)
  1. METFORMIN HCL [Suspect]
     Indication: DIABETES MELLITUS
     Dosage: 850MG TWICE DAILY
     Dates: start: 20060315, end: 20080815
  2. ACTOS [Suspect]
     Indication: DIABETES MELLITUS
     Dosage: 30MG 1 TIME A DAY
     Dates: start: 20080728, end: 20080918

REACTIONS (5)
  - CARDIAC FAILURE CONGESTIVE [None]
  - CONSTIPATION [None]
  - DIARRHOEA [None]
  - GASTRIC DISORDER [None]
  - JOINT SWELLING [None]
